FAERS Safety Report 23075854 (Version 1)
Quarter: 2023Q4

REPORT INFORMATION
  Report Type: Spontaneous
  Country: IT (occurrence: IT)
  Receive Date: 20231017
  Receipt Date: 20231017
  Transmission Date: 20240109
  Serious: Yes (Life-Threatening, Hospitalization, Other)
  Sender: FDA-Public Use
  Company Number: IT-SUN PHARMACEUTICAL INDUSTRIES LTD-2023R1-412114

PATIENT
  Age: 10 Year
  Sex: Male

DRUGS (7)
  1. METHYLPREDNISOLONE [Suspect]
     Active Substance: METHYLPREDNISOLONE
     Indication: Immunosuppressant drug therapy
     Dosage: UNK (15 MG/DIE)
     Route: 065
  2. METHYLPREDNISOLONE [Suspect]
     Active Substance: METHYLPREDNISOLONE
     Dosage: UNK (10 MG/DIE)
     Route: 065
  3. PREDNISONE [Suspect]
     Active Substance: PREDNISONE
     Indication: Graft versus host disease
     Dosage: UNK
     Route: 065
  4. TACROLIMUS [Suspect]
     Active Substance: TACROLIMUS
     Indication: Graft versus host disease
     Dosage: UNK (APPROXIMATELY 0.15 MG/KG/DIE)
     Route: 065
  5. RUXOLITINIB [Suspect]
     Active Substance: RUXOLITINIB
     Indication: Graft versus host disease
     Dosage: 5 MILLIGRAM, BID
     Route: 065
  6. RUXOLITINIB [Suspect]
     Active Substance: RUXOLITINIB
     Dosage: 2.5 MILLIGRAM, BID
     Route: 065
  7. SIROLIMUS [Suspect]
     Active Substance: SIROLIMUS
     Indication: Immunosuppressant drug therapy
     Dosage: 0.5 MILLIGRAM, DAILY
     Route: 065

REACTIONS (16)
  - Norovirus infection [Recovering/Resolving]
  - Acute kidney injury [Recovering/Resolving]
  - Hypertriglyceridaemia [Recovering/Resolving]
  - Polyomavirus-associated nephropathy [Recovering/Resolving]
  - Lymphopenia [Recovering/Resolving]
  - Thrombocytopenia [Recovering/Resolving]
  - Anaemia [Recovering/Resolving]
  - Renovascular hypertension [Recovering/Resolving]
  - Scedosporium infection [Recovering/Resolving]
  - Osteomyelitis [Recovering/Resolving]
  - Pancreatitis acute [Recovering/Resolving]
  - Hypertension [Recovering/Resolving]
  - Hepatic steatosis [Recovering/Resolving]
  - Insulin resistance [Unknown]
  - Polyomavirus viraemia [Recovering/Resolving]
  - Dyslipidaemia [Recovering/Resolving]
